FAERS Safety Report 19823404 (Version 1)
Quarter: 2021Q3

REPORT INFORMATION
  Report Type: Spontaneous
  Country: US (occurrence: US)
  Receive Date: 20210913
  Receipt Date: 20210913
  Transmission Date: 20211014
  Serious: No
  Sender: FDA-Public Use
  Company Number: US-GALDERMA-US2021016131

PATIENT

DRUGS (5)
  1. PROACTIV MD ULTRA GENTLE CLEANSER [Concomitant]
     Indication: ACNE
     Dosage: 1 DOSAGE FORM, BID, 2 OR MORE TIMES A DAY
     Route: 061
     Dates: start: 2018, end: 202105
  2. VITAMINS NOS [Concomitant]
     Active Substance: VITAMINS
     Indication: PRODUCT USED FOR UNKNOWN INDICATION
     Route: 065
  3. PROACTIV MD ADAPALENE ACNE TREATMENT [Suspect]
     Active Substance: ADAPALENE
     Indication: ACNE
     Dosage: 1 DOSAGE FORM, BID, 2 OR MORE TIMES A DAY
     Route: 061
     Dates: start: 2018, end: 202105
  4. PROACTIV MD ULTRA HYDRATING MOISTURIZER [Concomitant]
     Indication: ACNE
     Dosage: 1 DOSAGE FORM, BID, 2 OR MORE TIMES A DAY
     Route: 061
     Dates: start: 2018, end: 202105
  5. IBUPROFEN. [Concomitant]
     Active Substance: IBUPROFEN
     Indication: PRODUCT USED FOR UNKNOWN INDICATION
     Dosage: UNK
     Route: 065

REACTIONS (3)
  - Drug ineffective [Not Recovered/Not Resolved]
  - Inappropriate schedule of product administration [Recovered/Resolved]
  - Overdose [Recovered/Resolved]

NARRATIVE: CASE EVENT DATE: 2018
